FAERS Safety Report 5930211-5 (Version None)
Quarter: 2008Q4

REPORT INFORMATION
  Report Type: 
  Country: None (occurrence: None)
  Receive Date: 20081009
  Receipt Date: 20080319
  Transmission Date: 20090506
  Serious: Yes (Other)
  Sender: FDA-Public Use
  Company Number: PHEH2008US02876

PATIENT
  Sex: Female

DRUGS (1)
  1. ZOMETA [Suspect]
     Indication: NEOPLASM MALIGNANT

REACTIONS (6)
  - ANXIETY [None]
  - INJURY [None]
  - LIFE EXPECTANCY SHORTENED [None]
  - MASTICATION DISORDER [None]
  - OSTEONECROSIS [None]
  - SCAR PAIN [None]
